FAERS Safety Report 11242460 (Version 1)
Quarter: 2015Q3

REPORT INFORMATION
  Report Type: Spontaneous
  Country: IT (occurrence: IT)
  Receive Date: 20150707
  Receipt Date: 20150707
  Transmission Date: 20151125
  Serious: Yes (Hospitalization)
  Sender: FDA-Public Use
  Company Number: IT-ROCHE-1604070

PATIENT
  Age: 72 Year
  Sex: Female

DRUGS (6)
  1. LEVOXACIN [Concomitant]
     Active Substance: LEVOFLOXACIN
     Dosage: 500 MG 7 TABLETS
     Route: 048
     Dates: start: 20150623, end: 20150702
  2. RIBAVIRIN. [Suspect]
     Active Substance: RIBAVIRIN
     Indication: HEPATITIS C ANTIBODY POSITIVE
     Route: 048
     Dates: start: 20150608
  3. CITALOPRAM HYDROBROMIDE. [Concomitant]
     Active Substance: CITALOPRAM HYDROBROMIDE
     Indication: ANXIETY
     Route: 048
     Dates: start: 20150608, end: 20150702
  4. HALCION [Concomitant]
     Active Substance: TRIAZOLAM
     Indication: INSOMNIA
     Dosage: 250 MICROGRAM TABLETS 20 TABLETS
     Route: 048
     Dates: start: 20150608, end: 20150702
  5. SOVALDI [Suspect]
     Active Substance: SOFOSBUVIR
     Indication: HEPATITIS C ANTIBODY POSITIVE
     Dosage: BOTTLE (HDPE) - 28 TABLETS
     Route: 048
     Dates: start: 20150608
  6. CLEXANE [Concomitant]
     Active Substance: ENOXAPARIN SODIUM
     Dosage: 6000 INTERNATIONAL UNITS, IN THOUSANDS
     Route: 058
     Dates: start: 20150623, end: 20150702

REACTIONS (2)
  - Head injury [Unknown]
  - Balance disorder [Unknown]

NARRATIVE: CASE EVENT DATE: 20150626
